FAERS Safety Report 7629027-3 (Version None)
Quarter: 2011Q3

REPORT INFORMATION
  Report Type: 
  Country: None (occurrence: None)
  Receive Date: 20110722
  Receipt Date: 20110719
  Transmission Date: 20111222
  Serious: Yes (Death)
  Sender: FDA-Public Use
  Company Number: US-CELGENEUS-163-21880-11012277

PATIENT
  Sex: Female

DRUGS (1)
  1. REVLIMID [Suspect]
     Indication: MULTIPLE MYELOMA
     Dosage: 5-10 MG
     Route: 048
     Dates: start: 20100802, end: 20110105

REACTIONS (3)
  - PERFORMANCE STATUS DECREASED [None]
  - MULTIPLE MYELOMA [None]
  - FATIGUE [None]
